FAERS Safety Report 8906102 (Version 3)
Quarter: 2013Q1

REPORT INFORMATION
  Report Type: Spontaneous
  Country: US (occurrence: US)
  Receive Date: 20121111
  Receipt Date: 20130306
  Transmission Date: 20140127
  Serious: No
  Sender: FDA-Public Use
  Company Number: US-009507513-1211USA004068

PATIENT
  Sex: Female

DRUGS (3)
  1. PEGINTRON [Suspect]
     Indication: HEPATITIS C
     Dosage: UNK
     Dates: start: 20120914
  2. RIBAVIRIN [Suspect]
     Indication: HEPATITIS C
     Dosage: UNK
     Dates: start: 20120914
  3. TELAPREVIR [Suspect]
     Indication: HEPATITIS C
     Dosage: UNK
     Dates: start: 20120914, end: 20121207

REACTIONS (15)
  - Laboratory test abnormal [Unknown]
  - Hypokalaemia [Unknown]
  - Anaemia [Unknown]
  - Memory impairment [Unknown]
  - Blood potassium decreased [Unknown]
  - Thrombocytopenia [Recovered/Resolved]
  - Platelet count decreased [Recovered/Resolved]
  - Platelet count decreased [Recovering/Resolving]
  - Fatigue [Unknown]
  - Chills [Unknown]
  - Thrombocytopenia [Unknown]
  - Fatigue [Unknown]
  - Chills [Unknown]
  - Haemoglobin decreased [Unknown]
  - Platelet count decreased [Unknown]
